FAERS Safety Report 20299596 (Version 1)
Quarter: 2022Q1

REPORT INFORMATION
  Report Type: Spontaneous
  Country: US (occurrence: US)
  Receive Date: 20220105
  Receipt Date: 20220105
  Transmission Date: 20220423
  Serious: No
  Sender: FDA-Public Use
  Company Number: US-PFIZER INC-202101340383

PATIENT
  Age: 49 Year
  Sex: Female

DRUGS (1)
  1. IBRANCE [Suspect]
     Active Substance: PALBOCICLIB
     Dosage: 100 MG, 1X/DAY (21OF EACH 28 DAY CYCLE)
     Route: 048
     Dates: start: 20211001

REACTIONS (3)
  - Fatigue [Recovered/Resolved]
  - Dry mouth [Unknown]
  - Sinus disorder [Unknown]

NARRATIVE: CASE EVENT DATE: 20210101
